FAERS Safety Report 6532283-6 (Version None)
Quarter: 2010Q1

REPORT INFORMATION
  Report Type: 
  Country: None (occurrence: None)
  Receive Date: 20100108
  Receipt Date: 20091118
  Transmission Date: 20100710
  Serious: Yes (Other)
  Sender: FDA-Public Use
  Company Number: PHHY2009CH56541

PATIENT
  Age: 24 Year
  Sex: Male

DRUGS (3)
  1. CLOFAZIMINE [Suspect]
     Dosage: 50 MG PER DAY
  2. DAPSONE [Suspect]
     Dosage: 100 MG PER DAY
  3. RIFAMPICIN [Suspect]
     Dosage: 600 MG PER DAY

REACTIONS (3)
  - OEDEMA PERIPHERAL [None]
  - PAIN [None]
  - TYPE IV HYPERSENSITIVITY REACTION [None]
